FAERS Safety Report 9166799 (Version 1)
Quarter: 2012Q4

REPORT INFORMATION
  Report Type: 
  Country: US (occurrence: US)
  Receive Date: 20121114
  Receipt Date: 20121114
  Transmission Date: 20130627
  Serious: Yes (Other)
  Sender: FDA-Public Use
  Company Number: US-RB-046573-12

PATIENT
  Age: 22 Year
  Sex: Male

DRUGS (4)
  1. SUBOXONE FILM [Suspect]
     Indication: PRODUCT USED FOR UNKNOWN INDICATION
     Dosage: Suboxone film; unknown dosing details
     Route: 065
  2. SUBOXONE TABLET [Suspect]
     Indication: PRODUCT USED FOR UNKNOWN INDICATION
     Dosage: Unknown dosing details
     Route: 065
  3. SUBUTEX [Suspect]
     Indication: PRODUCT USED FOR UNKNOWN INDICATION
     Dosage: Unknown dosing details
     Route: 065
  4. SERTACONAZOLE [Suspect]
     Indication: PRODUCT USED FOR UNKNOWN INDICATION
     Dosage: Unknown dosing details
     Route: 065

REACTIONS (6)
  - Kaposi^s sarcoma [Not Recovered/Not Resolved]
  - Condition aggravated [Not Recovered/Not Resolved]
  - Somnolence [Not Recovered/Not Resolved]
  - Drug interaction [Not Recovered/Not Resolved]
  - Substance abuse [Not Recovered/Not Resolved]
  - Pruritus [Not Recovered/Not Resolved]
